FAERS Safety Report 17103844 (Version 1)
Quarter: 2019Q4

REPORT INFORMATION
  Report Type: Spontaneous
  Country: GR (occurrence: GR)
  Receive Date: 20191203
  Receipt Date: 20191203
  Transmission Date: 20200122
  Serious: Yes (Death, Other)
  Sender: FDA-Public Use
  Company Number: GR-AMGEN-GRCSP2019199992

PATIENT
  Age: 4 Month

DRUGS (8)
  1. VORICONAZOLE. [Concomitant]
     Active Substance: VORICONAZOLE
     Dosage: 15 MILLIGRAM/KILOGRAM PER BODY WEIGHT (BW) FINAL DOSE
  2. METHOTREXATE. [Concomitant]
     Active Substance: METHOTREXATE
  3. PURINETHOL [Concomitant]
     Active Substance: MERCAPTOPURINE
  4. BLINATUMOMAB [Suspect]
     Active Substance: BLINATUMOMAB
     Indication: ACUTE LYMPHOCYTIC LEUKAEMIA
     Route: 065
  5. CLOFARABINE. [Concomitant]
     Active Substance: CLOFARABINE
  6. CYCLOPHOSPHAMIDE. [Concomitant]
     Active Substance: CYCLOPHOSPHAMIDE
  7. VINCRISTINE [Concomitant]
     Active Substance: VINCRISTINE
  8. ETOPOSIDE. [Concomitant]
     Active Substance: ETOPOSIDE

REACTIONS (7)
  - Systemic mycosis [Recovering/Resolving]
  - Fusarium infection [Recovering/Resolving]
  - Oliguria [Recovering/Resolving]
  - Dyspnoea [Recovering/Resolving]
  - Rash maculo-papular [Recovering/Resolving]
  - Acute lymphocytic leukaemia refractory [Fatal]
  - Febrile neutropenia [Recovering/Resolving]
